FAERS Safety Report 7168204-5 (Version None)
Quarter: 2010Q4

REPORT INFORMATION
  Report Type: 
  Country: None (occurrence: None)
  Receive Date: 20101216
  Receipt Date: 20101208
  Transmission Date: 20110411
  Serious: Yes (Other)
  Sender: FDA-Public Use
  Company Number: BR-PFIZER INC-2010167708

PATIENT
  Age: 4 Month
  Sex: Male
  Weight: 8.2 kg

DRUGS (2)
  1. EPELIN [Suspect]
     Indication: CONVULSION
     Dosage: UNK
     Route: 048
     Dates: start: 20100901
  2. PHENOBARBITAL [Concomitant]
     Dosage: UNK
     Dates: start: 20100901

REACTIONS (2)
  - CONVULSION [None]
  - MENINGITIS [None]
